FAERS Safety Report 4342688-X (Version None)
Quarter: 2004Q1

REPORT INFORMATION
  Report Type: 
  Country: None (occurrence: None)
  Receive Date: 20040213
  Receipt Date: 20031031
  Transmission Date: 20041129
  Serious: Yes (Death, Hospitalization)
  Sender: FDA-Public Use
  Company Number: 350685

PATIENT
  Age: 36 Year
  Sex: Female
  Weight: 68 kg

DRUGS (2)
  1. PEGASYS [Suspect]
     Indication: HEPATITIS C
     Dosage: 1 ML 1 PER WEEK SUBCUTANEOUS
     Route: 058
     Dates: start: 20030615
  2. COPEGUS [Suspect]
     Indication: HEPATITIS C
     Dosage: ORAL
     Route: 048
     Dates: start: 20030615

REACTIONS (4)
  - DEPRESSION [None]
  - DRUG ABUSER [None]
  - NECROTISING FASCIITIS [None]
  - SEPSIS [None]
